FAERS Safety Report 4731756-6 (Version None)
Quarter: 2005Q3

REPORT INFORMATION
  Report Type: 
  Country: None (occurrence: None)
  Receive Date: 20050802
  Receipt Date: 20050802
  Transmission Date: 20060218
  Serious: Yes (Hospitalization)
  Sender: FDA-Public Use
  Company Number: None

PATIENT
  Age: 40 Year
  Sex: Male
  Weight: 83.9154 kg

DRUGS (7)
  1. WARFARIN 5 MG [Suspect]
     Indication: ANTICOAGULANT THERAPY
     Dosage: 5 MG PO DAILY CHRONIC
     Route: 048
  2. LEVOTHYROXINE [Suspect]
     Indication: THYROID DISORDER
     Dosage: 50 MG DAILY
  3. COUMADIN [Concomitant]
  4. TOPROL-XL [Concomitant]
  5. SYNTHROID [Concomitant]
  6. PERCOCET [Concomitant]
  7. LIPITOR [Concomitant]

REACTIONS (12)
  - ABDOMINAL PAIN LOWER [None]
  - ANAEMIA [None]
  - ASTHENIA [None]
  - DIFFICULTY IN WALKING [None]
  - FLANK PAIN [None]
  - HAEMORRHAGE [None]
  - INTERNATIONAL NORMALISED RATIO INCREASED [None]
  - MUSCULOSKELETAL STIFFNESS [None]
  - NERVE COMPRESSION [None]
  - NEURALGIA [None]
  - RETROPERITONEAL HAEMATOMA [None]
  - SENSORY LOSS [None]
